FAERS Safety Report 7354465-6 (Version None)
Quarter: 2011Q1

REPORT INFORMATION
  Report Type: 
  Country: None (occurrence: None)
  Receive Date: 20110316
  Receipt Date: 20110225
  Transmission Date: 20110831
  Serious: Yes (Other)
  Sender: FDA-Public Use
  Company Number: US-BAYER-201036214NA

PATIENT
  Sex: Female

DRUGS (6)
  1. YASMIN [Suspect]
     Indication: PRODUCT USED FOR UNKNOWN INDICATION
     Dates: start: 20060101
  2. UNCODEABLE ^UNCLASSIFIABLE^ [Concomitant]
     Dosage: 25 MG/HOUR OF SLEEP
  3. UNCODEABLE ^UNCLASSIFIABLE^ [Concomitant]
  4. PREVACID [Concomitant]
  5. IMITREX [Concomitant]
  6. YAZ [Suspect]
     Indication: PRODUCT USED FOR UNKNOWN INDICATION
     Dates: start: 20060101

REACTIONS (4)
  - ANXIETY [None]
  - INSOMNIA [None]
  - MIGRAINE WITHOUT AURA [None]
  - GALLBLADDER DISORDER [None]
